FAERS Safety Report 14895341 (Version 3)
Quarter: 2018Q3

REPORT INFORMATION
  Report Type: Report from Study
  Country: US (occurrence: US)
  Receive Date: 20180515
  Receipt Date: 20180806
  Transmission Date: 20181010
  Serious: Yes (Hospitalization)
  Sender: FDA-Public Use
  Company Number: US-GILEAD-2018-0337934

PATIENT
  Age: 40 Year
  Sex: Female

DRUGS (5)
  1. ORENITRAM [Suspect]
     Active Substance: TREPROSTINIL
     Dosage: 2.125 MG, QD
     Route: 065
     Dates: start: 20180104
  2. ORENITRAM [Suspect]
     Active Substance: TREPROSTINIL
     Indication: PULMONARY HYPERTENSION
     Dosage: 2.125 MG, UNK
     Route: 065
  3. AMBRISENTAN [Suspect]
     Active Substance: AMBRISENTAN
     Indication: PULMONARY HYPERTENSION
     Dosage: 10 MG, QD
     Route: 065
     Dates: start: 20070912
  4. ORENITRAM [Suspect]
     Active Substance: TREPROSTINIL
     Dosage: 1 MG, QD
     Route: 065
     Dates: start: 20180104
  5. ORENITRAM [Suspect]
     Active Substance: TREPROSTINIL
     Dosage: 5.25 MG, UNK
     Route: 065

REACTIONS (9)
  - Condition aggravated [Recovering/Resolving]
  - Tremor [Not Recovered/Not Resolved]
  - Asthma [Unknown]
  - Fluid retention [Unknown]
  - Pain in extremity [Recovering/Resolving]
  - Pain in jaw [Not Recovered/Not Resolved]
  - Bronchitis [Not Recovered/Not Resolved]
  - Migraine [Not Recovered/Not Resolved]
  - Fluid retention [Unknown]

NARRATIVE: CASE EVENT DATE: 20180502
